FAERS Safety Report 4996924-7 (Version None)
Quarter: 2006Q2

REPORT INFORMATION
  Report Type: 
  Country: None (occurrence: None)
  Receive Date: 20060509
  Receipt Date: 20060427
  Transmission Date: 20061013
  Serious: Yes (Hospitalization)
  Sender: FDA-Public Use
  Company Number: 06P-167-0330574-00

PATIENT
  Age: 9 Year
  Sex: Female
  Weight: 38.2 kg

DRUGS (3)
  1. AMOXICILLIN [Suspect]
     Indication: LOWER RESPIRATORY TRACT INFECTION
     Dosage: 20ML PER DAY
     Route: 048
     Dates: start: 20060124, end: 20060127
  2. ERYTHROCIN [Suspect]
     Indication: LOWER RESPIRATORY TRACT INFECTION
     Dosage: 20ML PER DAY
     Route: 048
     Dates: start: 20060127, end: 20060127
  3. ACETAMINOPHEN [Concomitant]
     Route: 065

REACTIONS (7)
  - APHAGIA [None]
  - CHAPPED LIPS [None]
  - CONJUNCTIVITIS [None]
  - DYSPHAGIA [None]
  - HAEMOPTYSIS [None]
  - MELAENA [None]
  - SWELLING FACE [None]
